FAERS Safety Report 13487214 (Version 1)
Quarter: 2017Q2

REPORT INFORMATION
  Report Type: Spontaneous
  Country: US (occurrence: US)
  Receive Date: 20170426
  Receipt Date: 20170426
  Transmission Date: 20170830
  Serious: No
  Sender: FDA-Public Use
  Company Number: PHEH2017US011586

PATIENT
  Age: 70 Year
  Sex: Female
  Weight: 83 kg

DRUGS (1)
  1. VALSARTAN. [Suspect]
     Active Substance: VALSARTAN
     Indication: BLOOD PRESSURE FLUCTUATION
     Dosage: 40 MG, 1- 2 TABS DAILY AS NEEDED
     Route: 065

REACTIONS (4)
  - Stress [Unknown]
  - Fall [Unknown]
  - Blood pressure fluctuation [Unknown]
  - Joint injury [Unknown]
